FAERS Safety Report 11840516 (Version 2)
Quarter: 2016Q1

REPORT INFORMATION
  Report Type: Spontaneous
  Country: JP (occurrence: JP)
  Receive Date: 20151216
  Receipt Date: 20160202
  Transmission Date: 20160525
  Serious: Yes (Hospitalization)
  Sender: FDA-Public Use
  Company Number: JP-009507513-1512JPN006798

PATIENT
  Age: 42 Year
  Sex: Male
  Weight: 85 kg

DRUGS (11)
  1. REBETOL [Suspect]
     Active Substance: RIBAVIRIN
     Indication: CHRONIC HEPATITIS C
     Dosage: 800 MG,DIVIDED DOSE FREQUENCY UNKNOWN
     Route: 048
     Dates: start: 20150904, end: 20151001
  2. PENTAGIN [Suspect]
     Active Substance: PENTAZOCINE HYDROCHLORIDE
     Dosage: 1 DF, PRN
     Route: 048
     Dates: start: 20151025
  3. KREMEZIN [Concomitant]
     Active Substance: ACTIVATED CHARCOAL
     Dosage: 30 CAPSULES DIVIDED BY 3, DAILY DOSAGE UNKNOWN
     Route: 048
     Dates: start: 20150717
  4. REBETOL [Suspect]
     Active Substance: RIBAVIRIN
     Dosage: 400 MG,DIVIDED DOSE FREQUENCY UNKNOWN
     Dates: start: 20151031, end: 20151102
  5. REBETOL [Suspect]
     Active Substance: RIBAVIRIN
     Dosage: 200 MG, DIVIDED DOSE FREQUENCY UNKNOWN
     Dates: start: 20151103, end: 20151127
  6. LIPITOR [Concomitant]
     Active Substance: ATORVASTATIN CALCIUM
     Indication: HYPERLIPIDAEMIA
     Dosage: 1 DF, QD, DIVIDED DOSE FREQUENCY UNKNOWN
     Route: 048
     Dates: start: 20150508
  7. REBETOL [Suspect]
     Active Substance: RIBAVIRIN
     Dosage: 600 MG, DIVIDED DOSE FREQUENCY UNKNOWN
     Route: 048
     Dates: start: 20151002, end: 20151030
  8. NATRIX [Concomitant]
     Active Substance: INDAPAMIDE
     Indication: OEDEMA
     Dosage: 1 MG, QD, DIVIDED DOSE FREQUENCY UNKNOWN
     Route: 048
     Dates: start: 20150306
  9. METGLUCO [Concomitant]
     Active Substance: METFORMIN HYDROCHLORIDE
     Indication: DIABETES MELLITUS
     Dosage: 2 TABLETS DIVIDED BY 2, DAILY DOSE UNKNOWN
     Route: 048
     Dates: start: 20141010
  10. SOVALDI [Suspect]
     Active Substance: SOFOSBUVIR
     Indication: CHRONIC HEPATITIS C
     Dosage: 400 MG, QD, DIVIDED DOSE FREQUENCY UNKNOWN
     Route: 048
     Dates: start: 20150904
  11. ZACRAS [Concomitant]
     Indication: HYPERTENSION
     Dosage: 1 DF, QD, DIVIDED DOSE FREQUENCY UNKNOWN
     Route: 048
     Dates: start: 20141010

REACTIONS (1)
  - Muscular weakness [Recovering/Resolving]

NARRATIVE: CASE EVENT DATE: 2015
